FAERS Safety Report 17788331 (Version 2)
Quarter: 2020Q2

REPORT INFORMATION
  Report Type: Spontaneous
  Country: CN (occurrence: CN)
  Receive Date: 20200514
  Receipt Date: 20200529
  Transmission Date: 20200714
  Serious: Yes (Other)
  Sender: FDA-Public Use
  Company Number: CN-GILEAD-2020-0466657

PATIENT
  Age: 63 Year
  Sex: Male

DRUGS (4)
  1. VALSARTAN. [Concomitant]
     Active Substance: VALSARTAN
     Indication: HYPERTENSION
     Dosage: UNK, QD
     Dates: start: 20200522
  2. ATORVASTATIN [Interacting]
     Active Substance: ATORVASTATIN
     Indication: LIPIDS ABNORMAL
  3. GENVOYA [Suspect]
     Active Substance: COBICISTAT\ELVITEGRAVIR\EMTRICITABINE\TENOFOVIR ALAFENAMIDE FUMARATE
     Indication: HIV INFECTION
     Dosage: 1 DOSAGE FORM, QD
     Route: 048
     Dates: start: 2019
  4. SHEN FU KANG JIAO NANG [Concomitant]
     Indication: RENAL IMPAIRMENT

REACTIONS (2)
  - Drug interaction [Unknown]
  - Renal injury [Recovering/Resolving]

NARRATIVE: CASE EVENT DATE: 20200428
